FAERS Safety Report 17398366 (Version 1)
Quarter: 2020Q1

REPORT INFORMATION
  Report Type: Spontaneous
  Country: US (occurrence: US)
  Receive Date: 20200210
  Receipt Date: 20200210
  Transmission Date: 20200409
  Serious: No
  Sender: FDA-Public Use
  Company Number: US-VAYAPHARMA-2018-US-010279

PATIENT
  Age: 68 Year
  Sex: Female
  Weight: 107.96 kg

DRUGS (10)
  1. RESTORIL [Concomitant]
     Active Substance: TEMAZEPAM
  2. CRESTOR [Concomitant]
     Active Substance: ROSUVASTATIN CALCIUM
  3. ELIQUIS [Concomitant]
     Active Substance: APIXABAN
  4. MELATONIN [Concomitant]
     Active Substance: MELATONIN
  5. L-METHYL FOLATE [Concomitant]
  6. UNSPECIFIED SUPPLEMENTS [Concomitant]
  7. CLONAZEPAM. [Concomitant]
     Active Substance: CLONAZEPAM
  8. VAYACOG (NON-SPECIFIC) [Suspect]
     Active Substance: DOCONEXENT\ICOSAPENT\PHOSPHATIDYL SERINE
     Indication: LIPID METABOLISM DISORDER
     Dosage: DAILY
     Dates: start: 20180604
  9. TRAMADOL. [Concomitant]
     Active Substance: TRAMADOL
  10. LEXAPRO [Concomitant]
     Active Substance: ESCITALOPRAM OXALATE

REACTIONS (2)
  - Speech disorder [Recovering/Resolving]
  - Mental impairment [Recovering/Resolving]

NARRATIVE: CASE EVENT DATE: 20180604
